FAERS Safety Report 9733472 (Version 1)
Quarter: 2013Q4

REPORT INFORMATION
  Report Type: Spontaneous
  Country: BR (occurrence: BR)
  Receive Date: 20131205
  Receipt Date: 20131205
  Transmission Date: 20140711
  Serious: Yes (Hospitalization)
  Sender: FDA-Public Use
  Company Number: BR-BIOGENIDEC-2013BI116434

PATIENT
  Sex: Female

DRUGS (8)
  1. AVONEX [Suspect]
     Indication: MULTIPLE SCLEROSIS
     Route: 030
     Dates: start: 2007, end: 201301
  2. AVONEX [Suspect]
     Indication: MULTIPLE SCLEROSIS
     Route: 030
     Dates: start: 201301
  3. TIORFAN [Concomitant]
     Indication: GASTROINTESTINAL DISORDER
  4. BUPROPION [Concomitant]
     Indication: ANXIETY
  5. BUPROPION [Concomitant]
     Indication: EX-TOBACCO USER
  6. RIVOTRIL [Concomitant]
  7. FENERGAN [Concomitant]
  8. DONAREN [Concomitant]

REACTIONS (5)
  - Appendicitis [Recovered/Resolved]
  - Endometriosis [Unknown]
  - Cholelithiasis [Unknown]
  - Weight increased [Not Recovered/Not Resolved]
  - Malaise [Recovered/Resolved]
